FAERS Safety Report 5754106-5 (Version None)
Quarter: 2008Q2

REPORT INFORMATION
  Report Type: 
  Country: None (occurrence: None)
  Receive Date: 20080530
  Receipt Date: 20080529
  Transmission Date: 20081010
  Serious: Yes (Life-Threatening, Other)
  Sender: FDA-Public Use
  Company Number: PHHY2008JP03557

PATIENT
  Sex: Male
  Weight: 73 kg

DRUGS (2)
  1. VOLTAREN [Suspect]
     Indication: TESTICULAR NEOPLASM
     Dosage: 50 MG/ DAY
     Route: 054
     Dates: start: 20080311, end: 20080311
  2. VOLTAREN [Suspect]
     Indication: PYREXIA

REACTIONS (21)
  - ALANINE AMINOTRANSFERASE INCREASED [None]
  - ANTITHROMBIN III DECREASED [None]
  - ANURIA [None]
  - ASPARTATE AMINOTRANSFERASE INCREASED [None]
  - BLOOD CREATINE PHOSPHOKINASE INCREASED [None]
  - BLOOD CREATININE INCREASED [None]
  - BLOOD LACTATE DEHYDROGENASE INCREASED [None]
  - BLOOD PRESSURE DECREASED [None]
  - BLOOD SODIUM DECREASED [None]
  - BLOOD UREA INCREASED [None]
  - C-REACTIVE PROTEIN INCREASED [None]
  - DISSEMINATED INTRAVASCULAR COAGULATION [None]
  - FIBRIN DEGRADATION PRODUCTS INCREASED [None]
  - HAEMATURIA [None]
  - HAEMODIALYSIS [None]
  - HEPAPLASTIN DECREASED [None]
  - HEPATIC FUNCTION ABNORMAL [None]
  - HOT FLUSH [None]
  - PYREXIA [None]
  - RENAL FAILURE ACUTE [None]
  - TOXIC SKIN ERUPTION [None]
